FAERS Safety Report 5849798-6 (Version None)
Quarter: 2008Q3

REPORT INFORMATION
  Report Type: 
  Country: None (occurrence: None)
  Receive Date: 20080819
  Receipt Date: 20080812
  Transmission Date: 20090109
  Serious: Yes (Other)
  Sender: FDA-Public Use
  Company Number: GB-ABBOTT-08P-167-0470390-00

PATIENT
  Age: 47 Year
  Sex: Female
  Weight: 135 kg

DRUGS (5)
  1. SIBUTRAMINE [Suspect]
     Indication: OBESITY
     Dates: start: 20080729, end: 20080730
  2. METFORMIN HCL [Concomitant]
     Indication: DIABETES MELLITUS
     Dates: start: 20050101
  3. INSULIN ASPART [Concomitant]
     Indication: DIABETES MELLITUS
     Dosage: APPROXIMATELY 20-30 IU-4 TIMES A DAY
  4. LANTUS [Concomitant]
     Indication: DIABETES MELLITUS
     Dates: start: 20070101
  5. RAMIPRIL [Concomitant]
     Indication: DRUG USE FOR UNKNOWN INDICATION
     Dates: start: 20080323

REACTIONS (5)
  - DIZZINESS [None]
  - FEELING DRUNK [None]
  - MOOD SWINGS [None]
  - PARAESTHESIA [None]
  - VISUAL IMPAIRMENT [None]
